FAERS Safety Report 12531750 (Version 1)
Quarter: 2016Q3

REPORT INFORMATION
  Report Type: Spontaneous
  Country: US (occurrence: US)
  Receive Date: 20160706
  Receipt Date: 20160706
  Transmission Date: 20161109
  Serious: No
  Sender: FDA-Public Use
  Company Number: US-PFIZER INC-2016328340

PATIENT
  Age: 6 Year
  Sex: Male

DRUGS (1)
  1. EPIPEN JR [Suspect]
     Active Substance: EPINEPHRINE
     Dosage: 0.15 MG, UNK
     Dates: start: 20160622, end: 20160622

REACTIONS (4)
  - Injection site haemorrhage [Recovered/Resolved]
  - Tremor [Recovered/Resolved]
  - Injection site bruising [Not Recovered/Not Resolved]
  - Accidental exposure to product by child [Recovered/Resolved]

NARRATIVE: CASE EVENT DATE: 20160622
